FAERS Safety Report 8571233 (Version 3)
Quarter: 2015Q3

REPORT INFORMATION
  Report Type: Spontaneous
  Country: US (occurrence: US)
  Receive Date: 20120521
  Receipt Date: 20150709
  Transmission Date: 20151125
  Serious: Yes (Other)
  Sender: FDA-Public Use
  Company Number: US-ASTRAZENECA-2012SE30240

PATIENT
  Age: 77 Year
  Sex: Male
  Weight: 71.4 kg

DRUGS (21)
  1. OMEPRAZOLE. [Suspect]
     Active Substance: OMEPRAZOLE
     Indication: GASTROOESOPHAGEAL REFLUX DISEASE
     Route: 048
     Dates: start: 2000
  2. OMEPRAZOLE. [Suspect]
     Active Substance: OMEPRAZOLE
     Indication: DYSPEPSIA
     Dosage: PRILOSEC
     Route: 048
  3. BABY ASPIRIN [Concomitant]
     Active Substance: ASPIRIN
     Route: 048
     Dates: start: 2000
  4. OMEPRAZOLE. [Suspect]
     Active Substance: OMEPRAZOLE
     Indication: DYSPEPSIA
     Route: 048
     Dates: start: 2000
  5. COENZYME Q10 [Concomitant]
     Active Substance: UBIDECARENONE
  6. OMEPRAZOLE. [Suspect]
     Active Substance: OMEPRAZOLE
     Indication: GASTROOESOPHAGEAL REFLUX DISEASE
     Dosage: PRILOSEC
     Route: 048
  7. RHINOCORT AQUA [Suspect]
     Active Substance: BUDESONIDE
     Indication: MULTIPLE ALLERGIES
     Dosage: TWO SPRAYS IN EACH NOSTRILS EVERY MORNING
     Route: 045
     Dates: start: 2012, end: 2012
  8. SYNTHROID [Concomitant]
     Active Substance: LEVOTHYROXINE SODIUM
  9. ALLEGRA [Concomitant]
     Active Substance: FEXOFENADINE HYDROCHLORIDE
  10. BABY ASPIRIN [Concomitant]
     Active Substance: ASPIRIN
     Route: 048
  11. SYNTHROID [Concomitant]
     Active Substance: LEVOTHYROXINE SODIUM
  12. NASAL SALINE RINSE [Concomitant]
     Dosage: AS REQUIRED
  13. OMEPRAZOLE. [Suspect]
     Active Substance: OMEPRAZOLE
     Indication: GASTROOESOPHAGEAL REFLUX DISEASE
     Route: 048
     Dates: start: 2000
  14. SIMVASTATIN. [Concomitant]
     Active Substance: SIMVASTATIN
     Indication: BLOOD CHOLESTEROL ABNORMAL
     Route: 048
  15. OMEPRAZOLE. [Suspect]
     Active Substance: OMEPRAZOLE
     Indication: GASTROOESOPHAGEAL REFLUX DISEASE
     Dosage: PRILOSEC
     Route: 048
  16. BABY ASPIRIN [Concomitant]
     Active Substance: ASPIRIN
     Route: 048
  17. OMEPRAZOLE. [Suspect]
     Active Substance: OMEPRAZOLE
     Indication: HIATUS HERNIA
     Route: 048
     Dates: start: 2000
  18. OMEPRAZOLE. [Suspect]
     Active Substance: OMEPRAZOLE
     Indication: HIATUS HERNIA
     Dosage: PRILOSEC
     Route: 048
  19. MULTIVITAMIN [Concomitant]
     Active Substance: VITAMINS
     Dosage: DAILY
  20. GLUCOSAMINE/CHONDROITIN [Concomitant]
  21. BENADRYL OTC [Concomitant]
     Dosage: AS REQUIRED

REACTIONS (53)
  - Epistaxis [Unknown]
  - Rhinorrhoea [Unknown]
  - Seasonal allergy [Unknown]
  - Multiple allergies [Unknown]
  - Monoclonal gammopathy [Unknown]
  - Eczema asteatotic [Unknown]
  - Back pain [Unknown]
  - Colon adenoma [Unknown]
  - Hiatus hernia [Unknown]
  - Muscle rupture [Unknown]
  - Seborrhoeic keratosis [Unknown]
  - Diverticulum [Unknown]
  - Nocturia [Unknown]
  - Body height decreased [Not Recovered/Not Resolved]
  - Infection [Unknown]
  - Blood pressure increased [Unknown]
  - Rotator cuff syndrome [Recovering/Resolving]
  - Spider vein [Unknown]
  - Erectile dysfunction [Unknown]
  - Dyspepsia [Unknown]
  - Renal impairment [Unknown]
  - Nephrolithiasis [Unknown]
  - Osteoarthritis [Unknown]
  - Hypothyroidism [Unknown]
  - Calculus ureteric [Unknown]
  - Arthritis [Unknown]
  - Anaemia [Unknown]
  - Nasal septum deviation [Unknown]
  - Benign prostatic hyperplasia [Unknown]
  - Osteopenia [Unknown]
  - Varicose vein [Unknown]
  - Hyperlipidaemia [Unknown]
  - Joint swelling [Unknown]
  - Subdural haematoma [Recovered/Resolved]
  - Deafness [Unknown]
  - Lacrimation increased [Unknown]
  - Dry eye [Unknown]
  - Musculoskeletal discomfort [Unknown]
  - Vomiting [Unknown]
  - Rash [Unknown]
  - Gilbert^s syndrome [Unknown]
  - Weight increased [Unknown]
  - Thyroid disorder [Unknown]
  - Refraction disorder [Unknown]
  - Barrett^s oesophagus [Unknown]
  - Sciatica [Recovered/Resolved]
  - Spinal osteoarthritis [Unknown]
  - Foot deformity [Unknown]
  - Haemangioma [Unknown]
  - Blood creatinine increased [Unknown]
  - Cough [Unknown]
  - Product use issue [Unknown]
  - Impaired healing [Unknown]

NARRATIVE: CASE EVENT DATE: 2010
